FAERS Safety Report 8491638-3 (Version None)
Quarter: 2012Q3

REPORT INFORMATION
  Report Type: 
  Country: None (occurrence: None)
  Receive Date: 20120706
  Receipt Date: 20120628
  Transmission Date: 20120928
  Serious: Yes (Other)
  Sender: FDA-Public Use
  Company Number: JP-PFIZER INC-2012146793

PATIENT
  Age: 65 Year
  Sex: Female

DRUGS (4)
  1. LYRICA [Suspect]
     Dosage: 75 MG, 2X/DAY
     Route: 048
     Dates: end: 20120510
  2. LYRICA [Suspect]
     Indication: NEURALGIA
     Dosage: UNK
     Route: 048
     Dates: start: 20120217
  3. OPALMON [Suspect]
     Dosage: UNK
     Route: 048
  4. ZOLPIDEM [Suspect]
     Dosage: UNK
     Route: 048

REACTIONS (6)
  - DIZZINESS [None]
  - VISUAL ACUITY REDUCED [None]
  - DYSARTHRIA [None]
  - THIRST [None]
  - ORTHOPEDIC PROCEDURE [None]
  - HYPOAESTHESIA [None]
